FAERS Safety Report 20077635 (Version 1)
Quarter: 2021Q4

REPORT INFORMATION
  Report Type: Report from Study
  Country: US (occurrence: US)
  Receive Date: 20211116
  Receipt Date: 20211116
  Transmission Date: 20220304
  Serious: Yes (Other)
  Sender: FDA-Public Use
  Company Number: US-ABBVIE-21K-163-4155757-00

PATIENT
  Sex: Female

DRUGS (4)
  1. HUMIRA [Suspect]
     Active Substance: ADALIMUMAB
     Indication: Psoriatic arthropathy
     Route: 058
  2. HUMIRA [Suspect]
     Active Substance: ADALIMUMAB
     Indication: Rheumatoid arthritis
  3. COVID-19 VACCINE [Concomitant]
     Indication: COVID-19 immunisation
     Dosage: JOHNSON + JOHNSON
     Route: 030
     Dates: start: 20200406, end: 20200406
  4. COVID-19 VACCINE [Concomitant]
     Dosage: JOHNSON + JOHNSON
     Route: 030
     Dates: start: 20211102, end: 20211102

REACTIONS (4)
  - Limb traumatic amputation [Unknown]
  - Ankle operation [Unknown]
  - Arthralgia [Unknown]
  - Pain [Unknown]
